FAERS Safety Report 15290551 (Version 2)
Quarter: 2018Q4

REPORT INFORMATION
  Report Type: Report from Study
  Country: None (occurrence: US)
  Receive Date: 20180817
  Receipt Date: 20181029
  Transmission Date: 20190204
  Serious: Yes (Hospitalization, Other)
  Sender: FDA-Public Use
  Company Number: US-ABBVIE-18K-163-2451711-00

PATIENT
  Age: 58 Year
  Sex: Male
  Weight: 112.14 kg

DRUGS (6)
  1. HUMIRA [Suspect]
     Active Substance: ADALIMUMAB
     Route: 058
     Dates: start: 201807
  2. LIALDA [Concomitant]
     Active Substance: MESALAMINE
     Indication: PSORIASIS
  3. FAMOTIDINE. [Concomitant]
     Active Substance: FAMOTIDINE
     Indication: PRODUCT USED FOR UNKNOWN INDICATION
  4. LOSARTAN POTASSIUM. [Concomitant]
     Active Substance: LOSARTAN POTASSIUM
     Indication: HYPERTENSION
  5. TRAMADOL. [Concomitant]
     Active Substance: TRAMADOL
     Indication: PAIN IN EXTREMITY
  6. HUMIRA [Suspect]
     Active Substance: ADALIMUMAB
     Indication: PSORIASIS
     Route: 058
     Dates: start: 201704, end: 201807

REACTIONS (9)
  - Bone density abnormal [Unknown]
  - Glycosylated haemoglobin abnormal [Recovering/Resolving]
  - Osteomyelitis [Unknown]
  - Gastric bypass [Unknown]
  - Type 2 diabetes mellitus [Recovering/Resolving]
  - Body mass index increased [Recovering/Resolving]
  - Sleep apnoea syndrome [Recovering/Resolving]
  - Procedural pain [Recovered/Resolved]
  - Peripheral swelling [Not Recovered/Not Resolved]

NARRATIVE: CASE EVENT DATE: 2017
